FAERS Safety Report 7136888-3 (Version None)
Quarter: 2010Q4

REPORT INFORMATION
  Report Type: 
  Country: None (occurrence: None)
  Receive Date: 20101206
  Receipt Date: 20081020
  Transmission Date: 20110411
  Serious: Yes (Death)
  Sender: FDA-Public Use
  Company Number: US-ACTELION-A-NJ2008-22520

PATIENT

DRUGS (2)
  1. ILOPROST INHALATION SOLUTION 5UG US [Suspect]
     Indication: PULMONARY HYPERTENSION
     Dosage: 5 UG, UNK
     Route: 055
     Dates: start: 20060814
  2. REVATIO [Concomitant]

REACTIONS (2)
  - DEATH [None]
  - OFF LABEL USE [None]
